FAERS Safety Report 8070643-5 (Version None)
Quarter: 2012Q1

REPORT INFORMATION
  Report Type: 
  Country: None (occurrence: None)
  Receive Date: 20120125
  Receipt Date: 20120119
  Transmission Date: 20120608
  Serious: Yes (Other)
  Sender: FDA-Public Use
  Company Number: PHHY2011CA86311

PATIENT
  Sex: Male

DRUGS (1)
  1. GILENYA [Suspect]
     Indication: RELAPSING-REMITTING MULTIPLE SCLEROSIS
     Dosage: 0.5 MG, DAILY
     Route: 048
     Dates: start: 20110817

REACTIONS (5)
  - ABDOMINAL PAIN [None]
  - PERIPHERAL COLDNESS [None]
  - DYSPNOEA [None]
  - DIZZINESS [None]
  - CHOLELITHIASIS [None]
